FAERS Safety Report 8183695-9 (Version None)
Quarter: 2012Q1

REPORT INFORMATION
  Report Type: 
  Country: None (occurrence: None)
  Receive Date: 20120305
  Receipt Date: 20120229
  Transmission Date: 20120608
  Serious: Yes (Death)
  Sender: FDA-Public Use
  Company Number: PHHY2012HU017823

PATIENT
  Age: 69 Year
  Sex: Male

DRUGS (2)
  1. ZOMETA [Suspect]
     Dosage: UNK
     Dates: start: 20100219
  2. ZOMETA [Suspect]
     Dosage: UNK
     Dates: start: 20091120

REACTIONS (1)
  - DEATH [None]
